FAERS Safety Report 4561002-8 (Version None)
Quarter: 2005Q1

REPORT INFORMATION
  Report Type: 
  Country: None (occurrence: None)
  Receive Date: 20050126
  Receipt Date: 20040618
  Transmission Date: 20050727
  Serious: No
  Sender: FDA-Public Use
  Company Number: US-BRISTOL-MYERS SQUIBB COMPANY-12619680

PATIENT
  Age: 57 Year
  Sex: Female
  Weight: 136 kg

DRUGS (3)
  1. GLUCOPHAGE [Suspect]
     Indication: DIABETES MELLITUS
     Route: 048
     Dates: start: 20030301
  2. DIOVAN [Concomitant]
  3. SYNTHROID [Concomitant]

REACTIONS (1)
  - UNEVALUABLE EVENT [None]
